FAERS Safety Report 6974317-0 (Version None)
Quarter: 2010Q3

REPORT INFORMATION
  Report Type: 
  Country: None (occurrence: None)
  Receive Date: 20100909
  Receipt Date: 20100827
  Transmission Date: 20110219
  Serious: Yes (Other)
  Sender: FDA-Public Use
  Company Number: PHHY2010FR57512

PATIENT
  Age: 56 Year
  Sex: Female

DRUGS (4)
  1. GLEEVEC [Suspect]
     Dosage: 400 MG, UNK
     Dates: start: 20080801, end: 20090101
  2. TASIGNA [Suspect]
     Dosage: 400 MG, UNK
     Dates: start: 20100601, end: 20100701
  3. TASIGNA [Suspect]
     Dosage: 200 MG, UNK
     Dates: start: 20100701
  4. SPRYCEL [Suspect]
     Dosage: 50 MG, UNK
     Dates: start: 20090501, end: 20090601

REACTIONS (1)
  - APNOEA [None]
